FAERS Safety Report 5804108-5 (Version None)
Quarter: 2008Q3

REPORT INFORMATION
  Report Type: 
  Country: None (occurrence: None)
  Receive Date: 20080707
  Receipt Date: 20080707
  Transmission Date: 20090109
  Serious: Yes (Hospitalization)
  Sender: FDA-Public Use
  Company Number: None

PATIENT
  Age: 77 Year
  Sex: Female
  Weight: 64.7 kg

DRUGS (7)
  1. GEMCITABINE [Suspect]
     Indication: BREAST CANCER
     Dosage: 563MG EVERY 8 DAYS
     Dates: start: 20040505, end: 20040519
  2. VALIUM [Concomitant]
  3. MULTI-VITAMIN [Concomitant]
  4. EFFEXOR [Concomitant]
  5. PROCRIT [Concomitant]
  6. LEXAPRO [Concomitant]
  7. CAFERGOT [Concomitant]

REACTIONS (2)
  - NEUTROPENIC SEPSIS [None]
  - URINARY TRACT INFECTION [None]
